FAERS Safety Report 25366854 (Version 1)
Quarter: 2025Q2

REPORT INFORMATION
  Report Type: Spontaneous
  Country: US (occurrence: US)
  Receive Date: 20250528
  Receipt Date: 20250528
  Transmission Date: 20250716
  Serious: No
  Sender: ELI LILLY AND COMPANY
  Company Number: US-ELI_LILLY_AND_COMPANY-US202505018955

PATIENT
  Age: 50 Year
  Sex: Female

DRUGS (3)
  1. EMGALITY [Suspect]
     Active Substance: GALCANEZUMAB-GNLM
     Indication: Migraine
     Route: 065
     Dates: start: 202412
  2. EMGALITY [Suspect]
     Active Substance: GALCANEZUMAB-GNLM
     Route: 065
     Dates: start: 202412
  3. UBRELVY [Concomitant]
     Active Substance: UBROGEPANT
     Indication: Migraine
     Route: 065

REACTIONS (2)
  - Injection site pain [Unknown]
  - Therapeutic response shortened [Unknown]
